FAERS Safety Report 17023645 (Version 1)
Quarter: 2019Q4

REPORT INFORMATION
  Report Type: Other
  Country: DE (occurrence: DE)
  Receive Date: 20191113
  Receipt Date: 20191113
  Transmission Date: 20200122
  Serious: No
  Sender: FDA-Public Use
  Company Number: DE-LUPIN PHARMACEUTICALS INC.-2019-06253

PATIENT
  Age: 35 Year
  Sex: Male
  Weight: 115 kg

DRUGS (2)
  1. PAROXETINE. [Suspect]
     Active Substance: PAROXETINE
     Indication: DIZZINESS
  2. PAROXETINE. [Suspect]
     Active Substance: PAROXETINE
     Indication: HEADACHE
     Dosage: UNK, (10-30 MG)
     Route: 048
     Dates: start: 20190527, end: 20190815

REACTIONS (2)
  - Thinking abnormal [Recovered/Resolved with Sequelae]
  - Excessive sexual fantasies [Recovered/Resolved with Sequelae]

NARRATIVE: CASE EVENT DATE: 20190527
